FAERS Safety Report 4702436-8 (Version None)
Quarter: 2005Q2

REPORT INFORMATION
  Report Type: 
  Country: None (occurrence: None)
  Receive Date: 20050629
  Receipt Date: 20050530
  Transmission Date: 20051028
  Serious: Yes (Hospitalization)
  Sender: FDA-Public Use
  Company Number: JP-BRISTOL-MYERS SQUIBB COMPANY-12986501

PATIENT
  Age: 66 Year
  Sex: Male

DRUGS (5)
  1. TAXOL [Suspect]
     Indication: LUNG NEOPLASM MALIGNANT
     Route: 041
     Dates: start: 20050525, end: 20050525
  2. DECADRON [Suspect]
     Indication: PREMEDICATION
     Route: 041
     Dates: start: 20050427, end: 20050525
  3. VENA [Concomitant]
     Route: 048
     Dates: start: 20050427, end: 20050525
  4. ZOFRAN [Concomitant]
     Route: 041
     Dates: start: 20050427, end: 20050525
  5. ZANTAC [Concomitant]
     Route: 042
     Dates: start: 20050427, end: 20050525

REACTIONS (3)
  - DELIRIUM [None]
  - DEPRESSED LEVEL OF CONSCIOUSNESS [None]
  - RESTLESSNESS [None]
